FAERS Safety Report 24718888 (Version 1)
Quarter: 2024Q4

REPORT INFORMATION
  Report Type: Spontaneous
  Country: US (occurrence: None)
  Receive Date: 20241210
  Receipt Date: 20241210
  Transmission Date: 20250115
  Serious: Yes (Hospitalization)
  Sender: Public
  Company Number: None

PATIENT
  Age: 88 Year
  Sex: Female
  Weight: 74.4 kg

DRUGS (1)
  1. PROMETHAZINE [Suspect]
     Active Substance: PROMETHAZINE HYDROCHLORIDE

REACTIONS (3)
  - Dyspnoea [None]
  - Hallucination [None]
  - Confusional state [None]

NARRATIVE: CASE EVENT DATE: 20241114
